FAERS Safety Report 25490665 (Version 2)
Quarter: 2025Q3

REPORT INFORMATION
  Report Type: Spontaneous
  Country: US (occurrence: US)
  Receive Date: 20250627
  Receipt Date: 20250701
  Transmission Date: 20251021
  Serious: Yes (Other)
  Sender: PFIZER
  Company Number: US-PFIZER INC-PV202500076534

PATIENT
  Age: 78 Year
  Sex: Female
  Weight: 65.32 kg

DRUGS (4)
  1. COLESTIPOL HYDROCHLORIDE [Suspect]
     Active Substance: COLESTIPOL HYDROCHLORIDE
     Indication: Gastrointestinal disorder
     Dosage: UNK, 1X/DAY
     Dates: start: 2025
  2. SYNTHROID [Concomitant]
     Active Substance: LEVOTHYROXINE SODIUM
  3. CREON [Concomitant]
     Active Substance: PANCRELIPASE AMYLASE\PANCRELIPASE LIPASE\PANCRELIPASE PROTEASE
  4. DEXILANT [Concomitant]
     Active Substance: DEXLANSOPRAZOLE

REACTIONS (6)
  - Foreign body in throat [Unknown]
  - Product use complaint [Unknown]
  - Product size issue [Unknown]
  - Wrong technique in product usage process [Unknown]
  - Intentional product misuse [Unknown]
  - Off label use [Unknown]
